FAERS Safety Report 4831093-5 (Version None)
Quarter: 2005Q4

REPORT INFORMATION
  Report Type: 
  Country: None (occurrence: None)
  Receive Date: 20051114
  Receipt Date: 20051028
  Transmission Date: 20060501
  Serious: Yes (Other)
  Sender: FDA-Public Use
  Company Number: 6018238F

PATIENT
  Age: 32 Year
  Sex: Male

DRUGS (7)
  1. NIASPAN [Suspect]
     Indication: BLOOD TRIGLYCERIDES INCREASED
     Dates: start: 20050930, end: 20051002
  2. ATENOLOL [Concomitant]
  3. EZETIMIBE [Concomitant]
  4. LEVOTHYROXINE SODIUM [Concomitant]
  5. ROSUVASTATIN [Concomitant]
  6. ORLISTAT [Concomitant]
  7. PAROXETINE HCL [Concomitant]

REACTIONS (5)
  - BLISTER [None]
  - DYSPNOEA [None]
  - FEELING HOT [None]
  - SKIN DISORDER [None]
  - WHEEZING [None]
